FAERS Safety Report 7926180-9 (Version None)
Quarter: 2011Q4

REPORT INFORMATION
  Report Type: 
  Country: None (occurrence: None)
  Receive Date: 20111118
  Receipt Date: 20111104
  Transmission Date: 20120403
  Serious: No
  Sender: FDA-Public Use
  Company Number: US-AMGEN-USASP2011046922

PATIENT
  Sex: Female

DRUGS (1)
  1. ENBREL [Suspect]
     Indication: RHEUMATOID ARTHRITIS
     Dosage: 50 MG, QWK
     Dates: start: 20090101

REACTIONS (11)
  - COLD SWEAT [None]
  - HOT FLUSH [None]
  - VOMITING [None]
  - INFLUENZA LIKE ILLNESS [None]
  - INFLUENZA [None]
  - DIARRHOEA [None]
  - PYREXIA [None]
  - INJECTION SITE PRURITUS [None]
  - INJECTION SITE SWELLING [None]
  - INJECTION SITE REACTION [None]
  - MALAISE [None]
